FAERS Safety Report 17053207 (Version 2)
Quarter: 2019Q4

REPORT INFORMATION
  Report Type: Spontaneous
  Country: US (occurrence: US)
  Receive Date: 20191120
  Receipt Date: 20191121
  Transmission Date: 20200122
  Serious: No
  Sender: FDA-Public Use
  Company Number: US-PFIZER INC-2019499907

PATIENT
  Age: 79 Year
  Sex: Male
  Weight: 113.4 kg

DRUGS (1)
  1. PROTONIX [Suspect]
     Active Substance: PANTOPRAZOLE SODIUM
     Indication: EROSIVE OESOPHAGITIS
     Dosage: 40 MG, 2X/DAY
     Dates: start: 20191113

REACTIONS (4)
  - Cough [Unknown]
  - Product administration interrupted [Unknown]
  - Incorrect drug administration rate [Unknown]
  - Drug ineffective [Unknown]
